FAERS Safety Report 10622317 (Version 1)
Quarter: 2014Q4

REPORT INFORMATION
  Report Type: Spontaneous
  Country: US (occurrence: None)
  Receive Date: 20141202
  Receipt Date: 20141202
  Transmission Date: 20150529
  Serious: No
  Sender: FDA-Public Use
  Company Number: None

PATIENT
  Age: 17 Year
  Sex: Male
  Weight: 88.91 kg

DRUGS (4)
  1. DEPAKOTE ER 1000MG [Concomitant]
  2. SEROQUEL XR 300MG [Concomitant]
  3. WELLBUTRIN XL [Concomitant]
     Active Substance: BUPROPION HYDROCHLORIDE
  4. TRAZODONE [Suspect]
     Active Substance: TRAZODONE HYDROCHLORIDE
     Dosage: 200MG (2 PILLS OF 100 MG) QHS BEDTIME ORAL
     Route: 048
     Dates: start: 20141125, end: 20141128

REACTIONS (2)
  - Somnolence [None]
  - Fatigue [None]

NARRATIVE: CASE EVENT DATE: 20141129
